FAERS Safety Report 13413744 (Version 4)
Quarter: 2023Q2

REPORT INFORMATION
  Report Type: Spontaneous
  Country: US (occurrence: US)
  Receive Date: 20170406
  Receipt Date: 20230413
  Transmission Date: 20230721
  Serious: No
  Sender: FDA-Public Use
  Company Number: US-JNJFOC-20170313988

PATIENT
  Age: 24 Year
  Sex: Male

DRUGS (4)
  1. RISPERDAL [Suspect]
     Active Substance: RISPERIDONE
     Indication: Schizophrenia
     Dosage: IN VARYING DOSES OF 0.5 MG, 1 MG AND 2 MG
     Route: 048
     Dates: start: 20120410, end: 20120508
  2. RISPERDAL [Suspect]
     Active Substance: RISPERIDONE
     Dosage: VARYING DOSES OF 1MG AND 2 MG
     Route: 048
     Dates: start: 20120713, end: 20130409
  3. RISPERIDONE [Suspect]
     Active Substance: RISPERIDONE
     Indication: Schizophrenia
     Dosage: IN VARYING DOSES OF 0.5 MG, 1 MG AND 2 MG
     Route: 048
     Dates: start: 20120410, end: 20130214
  4. RISPERIDONE [Suspect]
     Active Substance: RISPERIDONE
     Indication: Product used for unknown indication
     Route: 065

REACTIONS (4)
  - Emotional disorder [Unknown]
  - Swelling [Unknown]
  - Gynaecomastia [Unknown]
  - Drug ineffective [Unknown]

NARRATIVE: CASE EVENT DATE: 20130409
